FAERS Safety Report 5879271-0 (Version None)
Quarter: 2008Q3

REPORT INFORMATION
  Report Type: 
  Country: None (occurrence: None)
  Receive Date: 20080912
  Receipt Date: 20080610
  Transmission Date: 20090109
  Serious: No
  Sender: FDA-Public Use
  Company Number: US-BAYER-200825566NA

PATIENT

DRUGS (1)
  1. AVELOX [Suspect]
     Indication: PNEUMONIA
     Dosage: UNIT DOSE: 400 MG
     Route: 042

REACTIONS (2)
  - DISORIENTATION [None]
  - MENTAL STATUS CHANGES [None]
